FAERS Safety Report 15230034 (Version 1)
Quarter: 2018Q3

REPORT INFORMATION
  Report Type: Spontaneous
  Country: US (occurrence: US)
  Receive Date: 20180802
  Receipt Date: 20180802
  Transmission Date: 20181010
  Serious: Yes (Other)
  Sender: FDA-Public Use
  Company Number: US-ACCORD-062740

PATIENT
  Age: 40 Year
  Sex: Female
  Weight: 102.06 kg

DRUGS (9)
  1. DOCETAXEL ACCORD [Suspect]
     Active Substance: DOCETAXEL
     Indication: BREAST CANCER STAGE II
     Dosage: DOSE: 158 MG OF 6 DOSES EVERY 3 WEEKS FOR 60 MIN
     Route: 042
     Dates: start: 20140216, end: 20140611
  2. PERJETA [Suspect]
     Active Substance: PERTUZUMAB
     Indication: BREAST CANCER STAGE II
     Dosage: DOSE: 420 MG FOR 30?60 MIN EVERY 3 WEEKS
     Route: 042
     Dates: start: 20140216, end: 20140611
  3. PREDNISONE. [Concomitant]
     Active Substance: PREDNISONE
  4. ZOFRAN [Concomitant]
     Active Substance: ONDANSETRON HYDROCHLORIDE
  5. PROTONIX [Concomitant]
     Active Substance: PANTOPRAZOLE SODIUM
     Dosage: STRENGTH: 40 MG TABLET DELAYED RELEASE   ?1 TABLET ONCE A DAY
  6. PARAPLATIN [Suspect]
     Active Substance: CARBOPLATIN
     Indication: BREAST CANCER STAGE II
     Dosage: AUC: 6 FOR 30?60 MIN. FOR EVERY 3 WEEKS
     Route: 042
     Dates: start: 20140216, end: 20140611
  7. ACICLOVIR [Concomitant]
     Active Substance: ACYCLOVIR
     Dosage: STRENGTH: 400 MG 1 TO 2 ONCE A DAY
  8. ATIVAN [Concomitant]
     Active Substance: LORAZEPAM
     Dosage: STRENGTH: 0.5 MG??DOSE: .5 TO 1 TABLET TWICE?A DAY AS NEEDED
     Route: 048
  9. HERCEPTIN [Suspect]
     Active Substance: TRASTUZUMAB
     Indication: BREAST CANCER STAGE II
     Dosage: DOSE: 618 MG FOR 30 MIN EVERY 3 WEEKS
     Route: 042
     Dates: start: 20140216, end: 20140611

REACTIONS (1)
  - Alopecia [Not Recovered/Not Resolved]
